FAERS Safety Report 12257987 (Version 1)
Quarter: 2016Q2

REPORT INFORMATION
  Report Type: Spontaneous
  Country: JP (occurrence: JP)
  Receive Date: 20160412
  Receipt Date: 20160412
  Transmission Date: 20160815
  Serious: Yes (Other)
  Sender: FDA-Public Use
  Company Number: JP-BRISTOL-MYERS SQUIBB COMPANY-BMS-2016-025438

PATIENT

DRUGS (3)
  1. DAKLINZA [Suspect]
     Active Substance: DACLATASVIR
     Indication: PRODUCT USED FOR UNKNOWN INDICATION
     Route: 048
  2. ASUNAPREVIR [Suspect]
     Active Substance: ASUNAPREVIR
     Indication: PRODUCT USED FOR UNKNOWN INDICATION
     Route: 048
  3. REVOLADE [Concomitant]
     Active Substance: ELTROMBOPAG
     Indication: PRODUCT USED FOR UNKNOWN INDICATION
     Route: 065

REACTIONS (1)
  - Platelet count decreased [Unknown]
